FAERS Safety Report 12485356 (Version 2)
Quarter: 2016Q3

REPORT INFORMATION
  Report Type: Spontaneous
  Country: CH (occurrence: CH)
  Receive Date: 20160621
  Receipt Date: 20160915
  Transmission Date: 20161109
  Serious: Yes (Hospitalization, Disabling)
  Sender: FDA-Public Use
  Company Number: CH-PFIZER INC-2016299096

PATIENT
  Age: 34 Year
  Sex: Male
  Weight: 80 kg

DRUGS (6)
  1. AMIKACIN [Suspect]
     Active Substance: AMIKACIN
     Dosage: 1200 MG, 1X/DAY
     Route: 042
     Dates: start: 20120504, end: 20120801
  2. MOXIFLOXACIN. [Concomitant]
     Active Substance: MOXIFLOXACIN
     Indication: TUBERCULOSIS
     Dosage: 400 MG, 1X/DAY
     Route: 048
     Dates: start: 20111212, end: 20130807
  3. ZYVOXID [Suspect]
     Active Substance: LINEZOLID
     Indication: TUBERCULOSIS
     Dosage: 600 MG, 2X/DAY
     Route: 048
     Dates: start: 20111223, end: 20120307
  4. PYRAZINAMID [Concomitant]
     Active Substance: PYRAZINAMIDE
     Indication: TUBERCULOSIS
     Dosage: 2000 MG, 1X/DAY
     Route: 048
     Dates: start: 20111212, end: 20120613
  5. AMIKACIN [Suspect]
     Active Substance: AMIKACIN
     Indication: TUBERCULOSIS
     Dosage: 1200 MG, 1X/DAY
     Route: 042
     Dates: start: 20111223, end: 20120406
  6. ETHAMBUTOL [Concomitant]
     Active Substance: ETHAMBUTOL HYDROCHLORIDE
     Indication: TUBERCULOSIS
     Dosage: 600 MG, 1X/DAY
     Route: 048
     Dates: start: 20111212

REACTIONS (3)
  - Product use issue [Unknown]
  - Product use issue [Recovering/Resolving]
  - Polyneuropathy [Recovered/Resolved with Sequelae]

NARRATIVE: CASE EVENT DATE: 20120220
